FAERS Safety Report 9777628 (Version 2)
Quarter: 2013Q4

REPORT INFORMATION
  Report Type: Spontaneous
  Country: IT (occurrence: IT)
  Receive Date: 20131222
  Receipt Date: 20131222
  Transmission Date: 20140711
  Serious: Yes (Hospitalization)
  Sender: FDA-Public Use
  Company Number: IT-TEVA-443754ISR

PATIENT
  Age: 64 Year
  Sex: Female

DRUGS (6)
  1. CARBOPLATINO TEVA [Suspect]
     Dosage: 500 MILLIGRAM DAILY;
     Route: 042
     Dates: start: 20130924
  2. CARBOPLATINO TEVA [Suspect]
     Dosage: 500 MILLIGRAM DAILY;
     Route: 042
     Dates: start: 201310, end: 201310
  3. ASCRIPTIN [Concomitant]
  4. KCL RETARD 600 MG [Concomitant]
  5. TAVOR 1 MG [Concomitant]
  6. TORVAST 20 MG [Concomitant]

REACTIONS (4)
  - Chest pain [Recovered/Resolved]
  - Hypertension [Recovered/Resolved]
  - Angina pectoris [Unknown]
  - Hypertensive crisis [Recovered/Resolved]
